FAERS Safety Report 7321184 (Version 8)
Quarter: 2012Q4

REPORT INFORMATION
  Report Type: 
  Country: CA (occurrence: CA)
  Receive Date: 20100316
  Receipt Date: 20121109
  Transmission Date: 20130627
  Serious: Yes (Death, Hospitalization)
  Sender: FDA-Public Use
  Company Number: PHHY2010CA14897

PATIENT
  Sex: Male

DRUGS (2)
  1. SANDOSTATIN LAR [Suspect]
     Indication: METASTATIC CARCINOID TUMOUR
     Dosage: 60 mg, every 4 weeks
     Route: 030
     Dates: start: 20030329, end: 20110211
  2. OCTREOTIDE [Concomitant]
     Dosage: 75 ug, QD
     Dates: start: 20090327

REACTIONS (8)
  - Death [Fatal]
  - Dementia [Recovered/Resolved]
  - Confusional state [Unknown]
  - Fall [Recovered/Resolved]
  - General physical health deterioration [Unknown]
  - Intestinal obstruction [Recovered/Resolved]
  - Headache [Unknown]
  - Diarrhoea [Unknown]
